FAERS Safety Report 15626404 (Version 2)
Quarter: 2019Q1

REPORT INFORMATION
  Report Type: Spontaneous
  Country: US (occurrence: US)
  Receive Date: 20181116
  Receipt Date: 20190308
  Transmission Date: 20190417
  Serious: Yes (Other)
  Sender: FDA-Public Use
  Company Number: US-HIKMA PHARMACEUTICALS USA INC.-US-H14001-18-08317

PATIENT
  Age: 60 Year
  Sex: Female

DRUGS (4)
  1. FENTANYL. [Suspect]
     Active Substance: FENTANYL
     Dosage: INCREASING DOSES
     Route: 037
  2. FENTANYL. [Suspect]
     Active Substance: FENTANYL
     Indication: PRODUCT USED FOR UNKNOWN INDICATION
     Route: 037
  3. BUPIVACAINE. [Concomitant]
     Active Substance: BUPIVACAINE
     Indication: PRODUCT USED FOR UNKNOWN INDICATION
     Route: 037
  4. BUPIVACAINE. [Concomitant]
     Active Substance: BUPIVACAINE
     Dosage: INCREASING DOSES
     Route: 037

REACTIONS (4)
  - Somnolence [Recovered/Resolved]
  - Pain [Recovered/Resolved]
  - Hyperaesthesia [Recovered/Resolved]
  - Disturbance in attention [Recovered/Resolved]
